FAERS Safety Report 19108646 (Version 1)
Quarter: 2021Q2

REPORT INFORMATION
  Report Type: Spontaneous
  Country: GB (occurrence: GB)
  Receive Date: 20210408
  Receipt Date: 20210408
  Transmission Date: 20210717
  Serious: Yes (Other)
  Sender: FDA-Public Use
  Company Number: GB-TEVA-2021-GB-1897107

PATIENT
  Age: 58 Year
  Sex: Female

DRUGS (1)
  1. TEVA UK LEVOTHYROXINE [Suspect]
     Active Substance: LEVOTHYROXINE
     Indication: HYPOTHYROIDISM
     Dosage: 125 MICROGRAM DAILY;
     Route: 048
     Dates: start: 20200501, end: 20200616

REACTIONS (7)
  - Pruritus [Unknown]
  - Pyrexia [Unknown]
  - Blister [Recovered/Resolved]
  - Hyperhidrosis [Unknown]
  - Mouth swelling [Unknown]
  - Ear swelling [Unknown]
  - Burning sensation [Not Recovered/Not Resolved]

NARRATIVE: CASE EVENT DATE: 20200503
